FAERS Safety Report 15660678 (Version 3)
Quarter: 2019Q1

REPORT INFORMATION
  Report Type: Report from Study
  Country: US (occurrence: US)
  Receive Date: 20181127
  Receipt Date: 20190111
  Transmission Date: 20190417
  Serious: Yes (Hospitalization, Other)
  Sender: FDA-Public Use
  Company Number: US-PFIZER INC-2018255172

PATIENT
  Age: 62 Year
  Sex: Female

DRUGS (3)
  1. IBRANCE [Suspect]
     Active Substance: PALBOCICLIB
     Indication: BREAST CANCER FEMALE
     Dosage: 125 MG, CYCLIC (DAILY 21 DAYS ON 7 DAYS OFF)
     Route: 048
     Dates: start: 20180621, end: 2018
  2. FASLODEX [Suspect]
     Active Substance: FULVESTRANT
     Dosage: UNK
     Dates: start: 2018
  3. IBRANCE [Suspect]
     Active Substance: PALBOCICLIB
     Dosage: 125 MG, CYCLIC (DAILY 21 DAYS ON 7 DAYS OFF)
     Route: 048
     Dates: start: 2018, end: 2018

REACTIONS (12)
  - Abdominal pain upper [Recovered/Resolved]
  - Thermal burn [Unknown]
  - Myalgia [Unknown]
  - Chest pain [Unknown]
  - Stress [Unknown]
  - Blood glucose increased [Recovering/Resolving]
  - Fatigue [Not Recovered/Not Resolved]
  - Epistaxis [Unknown]
  - Vulvovaginal pruritus [Recovered/Resolved]
  - Anxiety [Unknown]
  - White blood cell count decreased [Unknown]
  - Product administration error [Unknown]

NARRATIVE: CASE EVENT DATE: 2018
